FAERS Safety Report 4371678-6 (Version None)
Quarter: 2004Q2

REPORT INFORMATION
  Report Type: 
  Country: None (occurrence: None)
  Receive Date: 20040602
  Receipt Date: 20040517
  Transmission Date: 20050107
  Serious: Yes (Disabling)
  Sender: FDA-Public Use
  Company Number: DSA_24443_2004

PATIENT
  Age: 80 Year
  Sex: Female

DRUGS (4)
  1. VASOTEC [Suspect]
     Indication: HYPERTENSION
     Dosage: DF UNK; PO
     Route: 048
  2. LIPITOR [Suspect]
     Dosage: DF, UNK; UNK
     Route: 065
  3. TENORETIC [Suspect]
     Dosage: DF, UNK; UNK
     Route: 065
  4. NORVASC [Suspect]
     Dosage: DF, UNK, UNK
     Route: 065

REACTIONS (5)
  - BALANCE DISORDER [None]
  - CARTILAGE INJURY [None]
  - FALL [None]
  - JOINT INJURY [None]
  - PHARMACEUTICAL PRODUCT COMPLAINT [None]
